FAERS Safety Report 23037218 (Version 1)
Quarter: 2023Q4

REPORT INFORMATION
  Report Type: Spontaneous
  Country: GB (occurrence: GB)
  Receive Date: 20231006
  Receipt Date: 20231006
  Transmission Date: 20240110
  Serious: No
  Sender: FDA-Public Use
  Company Number: None

PATIENT
  Age: 1 Year
  Sex: Male

DRUGS (3)
  1. IBUPROFEN [Suspect]
     Active Substance: IBUPROFEN
     Indication: Cough
     Dosage: UNK (ORAL SUSPENSION)
     Route: 065
  2. IBUPROFEN [Suspect]
     Active Substance: IBUPROFEN
     Indication: Sneezing
     Dosage: UNK (ORAL SUSPENSION)
     Route: 065
  3. IBUPROFEN [Suspect]
     Active Substance: IBUPROFEN
     Indication: Nasopharyngitis
     Dosage: 2.5 MILLILITER, PRN (ORAL SUSPENSION) (FROM A SYRINGE AS NEEDED (PATIENT MIGHT TAKE IT ONCE A DAY OR
     Route: 048

REACTIONS (3)
  - Taste disorder [Recovered/Resolved]
  - Illness [Recovered/Resolved]
  - Hypersensitivity [Recovered/Resolved]

NARRATIVE: CASE EVENT DATE: 20230501
